FAERS Safety Report 11414898 (Version 1)
Quarter: 2015Q3

REPORT INFORMATION
  Report Type: Spontaneous
  Country: US (occurrence: US)
  Receive Date: 20150825
  Receipt Date: 20150825
  Transmission Date: 20151125
  Serious: No
  Sender: FDA-Public Use
  Company Number: US-ASTRAZENECA-2015SE79275

PATIENT
  Age: 30 Year
  Sex: Female
  Weight: 83.9 kg

DRUGS (2)
  1. NEXIUM [Suspect]
     Active Substance: ESOMEPRAZOLE MAGNESIUM
     Indication: BARRETT^S OESOPHAGUS
     Route: 048
     Dates: start: 1998, end: 2010
  2. NEXIUM [Suspect]
     Active Substance: ESOMEPRAZOLE MAGNESIUM
     Indication: BARRETT^S OESOPHAGUS
     Route: 048

REACTIONS (4)
  - Product use issue [Unknown]
  - Pain [Unknown]
  - Depressed mood [Unknown]
  - Off label use [Unknown]

NARRATIVE: CASE EVENT DATE: 1998
